FAERS Safety Report 19062622 (Version 5)
Quarter: 2023Q1

REPORT INFORMATION
  Report Type: Spontaneous
  Country: JP (occurrence: JP)
  Receive Date: 20210326
  Receipt Date: 20230123
  Transmission Date: 20230417
  Serious: Yes (Death, Life-Threatening, Hospitalization)
  Sender: FDA-Public Use
  Company Number: JP-JNJFOC-A-CH2018-178376

PATIENT
  Age: 74 Year
  Sex: Female
  Weight: 37.2 kg

DRUGS (7)
  1. UPTRAVI [Suspect]
     Active Substance: SELEXIPAG
     Indication: Pulmonary arterial hypertension
     Dosage: 0.2 MG, QD
     Route: 048
     Dates: start: 20180419, end: 20200525
  2. ADCIRCA [Concomitant]
     Active Substance: TADALAFIL
     Indication: Pulmonary arterial hypertension
     Dosage: 40 MG, QD
     Dates: end: 20190808
  3. BERAPROST SODIUM [Concomitant]
     Active Substance: BERAPROST SODIUM
     Indication: Pulmonary arterial hypertension
     Dosage: 40 MCG, QD
     Dates: end: 20200525
  4. METHYLCOBALAMIN [Concomitant]
     Active Substance: METHYLCOBALAMIN
     Dosage: 1000 MCG, QD
     Dates: end: 20191030
  5. LIMAPROST [Concomitant]
     Active Substance: LIMAPROST
     Dosage: 10 MCG, QD
     Dates: end: 20200525
  6. ISODINE SUGAR [Concomitant]
     Dates: end: 20200525
  7. FIBLAST [TRAFERMIN] [Concomitant]
     Indication: Systemic scleroderma
     Dates: start: 20181011, end: 20200525

REACTIONS (3)
  - Pulmonary arterial hypertension [Fatal]
  - Chronic kidney disease [Fatal]
  - Headache [Recovering/Resolving]

NARRATIVE: CASE EVENT DATE: 20180419
